FAERS Safety Report 4449532-0 (Version None)
Quarter: 2004Q3

REPORT INFORMATION
  Report Type: 
  Country: None (occurrence: None)
  Receive Date: 20040914
  Receipt Date: 20040908
  Transmission Date: 20050211
  Serious: Yes (Other)
  Sender: FDA-Public Use
  Company Number: BR-ROCHE-380089

PATIENT
  Age: 54 Year
  Weight: 65 kg

DRUGS (3)
  1. RIVOTRIL [Suspect]
     Indication: ANXIETY
     Route: 048
  2. RIVOTRIL [Suspect]
     Route: 048
     Dates: start: 20040906, end: 20040906
  3. ANTIDEPRESSANT NOS [Concomitant]
     Indication: DEPRESSION
     Route: 048

REACTIONS (5)
  - CONVERSION DISORDER [None]
  - DIARRHOEA [None]
  - OVERDOSE [None]
  - SOMNOLENCE [None]
  - SUICIDE ATTEMPT [None]
